FAERS Safety Report 8842262 (Version 3)
Quarter: 2012Q4

REPORT INFORMATION
  Report Type: Report from Study
  Country: FR (occurrence: FR)
  Receive Date: 20121016
  Receipt Date: 20121126
  Transmission Date: 20130627
  Serious: Yes (Hospitalization)
  Sender: FDA-Public Use
  Company Number: PHHY2012FR091419

PATIENT
  Age: 57 Year
  Sex: Female
  Weight: 42 kg

DRUGS (3)
  1. ACLASTA/ZOLEDRONATE [Suspect]
     Indication: OSTEOPOROSIS
     Dosage: 5 mg
     Route: 042
     Dates: start: 20120113
  2. ESCITALOPRAM [Concomitant]
     Dosage: 1 DF, QD
     Dates: start: 2010
  3. UVEDOSE [Concomitant]
     Dosage: UNK UKN, UNK
     Dates: start: 2012

REACTIONS (1)
  - Breast cancer recurrent [Not Recovered/Not Resolved]
